FAERS Safety Report 12999432 (Version 2)
Quarter: 2016Q4

REPORT INFORMATION
  Report Type: Spontaneous
  Country: US (occurrence: US)
  Receive Date: 20161205
  Receipt Date: 20161205
  Transmission Date: 20170207
  Serious: No
  Sender: FDA-Public Use
  Company Number: US-ELI_LILLY_AND_COMPANY-US201611003568

PATIENT
  Age: 65 Year

DRUGS (1)
  1. TRULICITY [Suspect]
     Active Substance: DULAGLUTIDE
     Indication: BLOOD GLUCOSE ABNORMAL
     Dosage: 1.5 UG, UNKNOWN
     Route: 065
     Dates: start: 20161007, end: 20161107

REACTIONS (4)
  - Injection site pain [Unknown]
  - Nausea [Unknown]
  - Abdominal distension [Unknown]
  - Pain [Unknown]
